FAERS Safety Report 4357196-X (Version None)
Quarter: 2004Q2

REPORT INFORMATION
  Report Type: 
  Country: None (occurrence: None)
  Receive Date: 20040507
  Receipt Date: 20040427
  Transmission Date: 20050107
  Serious: Yes (Hospitalization)
  Sender: FDA-Public Use
  Company Number: US-JNJFOC-20031103791

PATIENT
  Age: 61 Year
  Sex: Male
  Weight: 83.9154 kg

DRUGS (10)
  1. INFLIXIMAB (INFLIXIMAB, RECOMBINANT) LYOPHILIZED POWDER [Suspect]
     Indication: RHEUMATOID ARTHRITIS
     Dosage: INTRAVENOUS
     Route: 042
     Dates: start: 20020314
  2. CLINDAMYCIN HCL [Suspect]
     Indication: CELLULITIS
     Dosage: 300 MG, 4 IN 1 DAY, ORAL
     Route: 048
  3. NORVASC [Concomitant]
  4. ARTHROTEC [Concomitant]
  5. NEXIUM [Concomitant]
  6. ARAVA [Concomitant]
  7. CELEXA [Concomitant]
  8. LISINOPRIL [Concomitant]
  9. LORTAB [Concomitant]
  10. DIFLUCAN [Concomitant]

REACTIONS (9)
  - BURSITIS [None]
  - CELLULITIS [None]
  - DIARRHOEA [None]
  - HAEMATOCRIT DECREASED [None]
  - HAEMOGLOBIN DECREASED [None]
  - MASS EXCISION [None]
  - PROCEDURAL COMPLICATION [None]
  - STAPHYLOCOCCAL INFECTION [None]
  - SWELLING [None]
